FAERS Safety Report 19376022 (Version 2)
Quarter: 2021Q3

REPORT INFORMATION
  Report Type: Report from Study
  Country: DE (occurrence: DE)
  Receive Date: 20210605
  Receipt Date: 20210802
  Transmission Date: 20211014
  Serious: Yes (Life-Threatening, Hospitalization, Other)
  Sender: FDA-Public Use
  Company Number: DE-CELLTRION INC.-2021DE007519

PATIENT

DRUGS (1)
  1. TRUXIMA [Suspect]
     Active Substance: RITUXIMAB-ABBS
     Indication: ADULT T-CELL LYMPHOMA/LEUKAEMIA
     Dosage: 788 MG, ON DAY 1 OF EACH CYCLE
     Route: 042
     Dates: start: 20200204, end: 20200506

REACTIONS (11)
  - Dizziness [Recovered/Resolved]
  - Dehydration [Recovered/Resolved]
  - Acute kidney injury [Recovered/Resolved]
  - Rhinorrhoea [Unknown]
  - Mucosal inflammation [Recovered/Resolved]
  - Congestive cardiomyopathy [Unknown]
  - Neutrophil count decreased [Recovered/Resolved]
  - Eye pain [Recovered/Resolved]
  - Fatigue [Unknown]
  - Pancytopenia [Recovered/Resolved]
  - Pulmonary embolism [Unknown]

NARRATIVE: CASE EVENT DATE: 202003
